FAERS Safety Report 5224516-3 (Version None)
Quarter: 2007Q1

REPORT INFORMATION
  Report Type: 
  Country: None (occurrence: None)
  Receive Date: 20070130
  Receipt Date: 20070118
  Transmission Date: 20070707
  Serious: Yes (Other)
  Sender: FDA-Public Use
  Company Number: JP-PFIZER INC-2007005903

PATIENT
  Age: 80 Year
  Sex: Male

DRUGS (1)
  1. CEFOPERAZONE/SULBACTAM [Suspect]
     Indication: INFECTION PROPHYLAXIS
     Dosage: DAILY DOSE:1GRAM
     Route: 042

REACTIONS (1)
  - ANAPHYLACTIC SHOCK [None]
